FAERS Safety Report 16758727 (Version 2)
Quarter: 2021Q1

REPORT INFORMATION
  Report Type: Spontaneous
  Country: US (occurrence: US)
  Receive Date: 20190830
  Receipt Date: 20210126
  Transmission Date: 20210419
  Serious: Yes (Hospitalization, Other)
  Sender: FDA-Public Use
  Company Number: US-ASTRAZENECA-2019SF20541

PATIENT
  Age: 22070 Day
  Sex: Male
  Weight: 120.2 kg

DRUGS (88)
  1. FUROSEMIDE. [Concomitant]
     Active Substance: FUROSEMIDE
     Indication: BLOOD PRESSURE ABNORMAL
     Route: 065
     Dates: start: 2016
  2. PRAVASTATIN. [Concomitant]
     Active Substance: PRAVASTATIN
     Indication: BLOOD CHOLESTEROL ABNORMAL
     Route: 065
     Dates: start: 2015
  3. PRAVASTATIN. [Concomitant]
     Active Substance: PRAVASTATIN
     Indication: BLOOD CHOLESTEROL ABNORMAL
     Route: 065
     Dates: start: 2016
  4. PRAVASTATIN. [Concomitant]
     Active Substance: PRAVASTATIN
     Indication: BLOOD CHOLESTEROL ABNORMAL
     Route: 065
     Dates: start: 2017
  5. TRAMADOL. [Concomitant]
     Active Substance: TRAMADOL
     Indication: PAIN
     Route: 065
     Dates: start: 2014
  6. TUMS [Concomitant]
     Active Substance: CALCIUM CARBONATE
     Indication: ACIDOSIS
     Route: 065
     Dates: start: 2012, end: 2019
  7. LEVITRA [Concomitant]
     Active Substance: VARDENAFIL HYDROCHLORIDE
     Route: 065
     Dates: start: 20110906
  8. GABAPENTIN. [Concomitant]
     Active Substance: GABAPENTIN
     Route: 065
     Dates: start: 20120504
  9. CARVEDILOL. [Concomitant]
     Active Substance: CARVEDILOL
     Route: 065
     Dates: start: 20140905
  10. TAMIFLU [Concomitant]
     Active Substance: OSELTAMIVIR PHOSPHATE
     Route: 065
     Dates: start: 20151228
  11. PRILOSEC [Suspect]
     Active Substance: OMEPRAZOLE MAGNESIUM
     Indication: GASTROOESOPHAGEAL REFLUX DISEASE
     Dosage: GENERIC
     Route: 065
  12. PRILOSEC [Suspect]
     Active Substance: OMEPRAZOLE MAGNESIUM
     Indication: GASTROOESOPHAGEAL REFLUX DISEASE
     Dosage: GENERIC
     Route: 065
     Dates: start: 20111219
  13. CIPROFLOXACIN. [Concomitant]
     Active Substance: CIPROFLOXACIN
     Indication: ANTIBIOTIC THERAPY
     Route: 065
     Dates: start: 2009
  14. LISINOPRIL. [Concomitant]
     Active Substance: LISINOPRIL
     Indication: BLOOD PRESSURE ABNORMAL
     Route: 065
     Dates: start: 2016
  15. LISINOPRIL HCTZ [Concomitant]
     Active Substance: HYDROCHLOROTHIAZIDE\LISINOPRIL
     Indication: BLOOD PRESSURE ABNORMAL
     Route: 065
     Dates: start: 2007
  16. TORSEMIDE. [Concomitant]
     Active Substance: TORSEMIDE
     Indication: BLOOD PRESSURE ABNORMAL
     Route: 065
     Dates: start: 2017
  17. FUROSEMIDE. [Concomitant]
     Active Substance: FUROSEMIDE
     Indication: BLOOD PRESSURE ABNORMAL
     Route: 065
     Dates: start: 2015
  18. PRAVASTATIN. [Concomitant]
     Active Substance: PRAVASTATIN
     Indication: BLOOD CHOLESTEROL ABNORMAL
     Route: 065
     Dates: start: 2013
  19. DOCUSATE SODIUM. [Concomitant]
     Active Substance: DOCUSATE SODIUM
     Indication: FAECES SOFT
     Route: 065
     Dates: start: 2012
  20. HUMALOG [Concomitant]
     Active Substance: INSULIN LISPRO
     Route: 065
     Dates: start: 20140318
  21. TRAVATAN [Concomitant]
     Active Substance: TRAVOPROST
     Route: 065
     Dates: start: 20100811
  22. RENA?VITE [Concomitant]
     Active Substance: ASCORBIC ACID\BIOTIN\CALCIUM PANTOTHENATE\CYANOCOBALAMIN\FOLIC ACID\NIACINAMIDE\PYRIDOXINE HYDROCHLORIDE\RIBOFLAVIN\THIAMINE MONONITRATE
     Route: 065
     Dates: start: 20100518
  23. VIAGRA [Concomitant]
     Active Substance: SILDENAFIL CITRATE
     Route: 065
     Dates: start: 20090731
  24. BACTROBAN [Concomitant]
     Active Substance: MUPIROCIN\MUPIROCIN CALCIUM
     Route: 065
     Dates: start: 20060508
  25. NEXIUM [Suspect]
     Active Substance: ESOMEPRAZOLE MAGNESIUM
     Indication: GASTROOESOPHAGEAL REFLUX DISEASE
     Route: 048
     Dates: start: 2001, end: 2017
  26. PRILOSEC [Suspect]
     Active Substance: OMEPRAZOLE MAGNESIUM
     Indication: GASTROOESOPHAGEAL REFLUX DISEASE
     Route: 048
  27. AMOXICILLIN. [Concomitant]
     Active Substance: AMOXICILLIN
     Indication: ANTIBIOTIC THERAPY
     Route: 065
     Dates: start: 2014
  28. LISINOPRIL. [Concomitant]
     Active Substance: LISINOPRIL
     Indication: BLOOD PRESSURE ABNORMAL
     Route: 065
     Dates: start: 2010
  29. LISINOPRIL. [Concomitant]
     Active Substance: LISINOPRIL
     Indication: BLOOD PRESSURE ABNORMAL
     Route: 065
     Dates: start: 2014
  30. TRICOR [Concomitant]
     Active Substance: FENOFIBRATE
     Indication: BLOOD CHOLESTEROL ABNORMAL
     Route: 065
     Dates: start: 2009
  31. MELOXICAM. [Concomitant]
     Active Substance: MELOXICAM
     Indication: PAIN
     Route: 065
     Dates: start: 2009
  32. PRAVASTATIN. [Concomitant]
     Active Substance: PRAVASTATIN
     Indication: BLOOD CHOLESTEROL ABNORMAL
     Route: 065
     Dates: start: 2012
  33. CARTIA [Concomitant]
     Route: 065
     Dates: start: 20100420
  34. CARDIZEM [Concomitant]
     Active Substance: DILTIAZEM HYDROCHLORIDE
     Route: 065
     Dates: start: 20090308
  35. HYOSCYAMINE. [Concomitant]
     Active Substance: HYOSCYAMINE
     Route: 065
     Dates: start: 20060508
  36. CEPHALEXIN. [Concomitant]
     Active Substance: CEPHALEXIN
     Indication: ANTIBIOTIC THERAPY
     Route: 065
     Dates: start: 2013
  37. LISINOPRIL. [Concomitant]
     Active Substance: LISINOPRIL
     Indication: BLOOD PRESSURE ABNORMAL
     Route: 065
     Dates: start: 2009
  38. TRICOR [Concomitant]
     Active Substance: FENOFIBRATE
     Indication: BLOOD CHOLESTEROL ABNORMAL
     Route: 065
     Dates: start: 2006
  39. HYDRALAZINE [Concomitant]
     Active Substance: HYDRALAZINE HYDROCHLORIDE
     Indication: BLOOD PRESSURE ABNORMAL
     Route: 065
     Dates: start: 2009
  40. TORSEMIDE. [Concomitant]
     Active Substance: TORSEMIDE
     Indication: BLOOD PRESSURE ABNORMAL
     Route: 065
     Dates: start: 2013
  41. TORSEMIDE. [Concomitant]
     Active Substance: TORSEMIDE
     Indication: BLOOD PRESSURE ABNORMAL
     Route: 065
     Dates: start: 2016
  42. DOCUSATE SODIUM. [Concomitant]
     Active Substance: DOCUSATE SODIUM
     Indication: FAECES SOFT
     Route: 065
     Dates: start: 2013
  43. DOCUSATE SODIUM. [Concomitant]
     Active Substance: DOCUSATE SODIUM
     Indication: FAECES SOFT
     Route: 065
     Dates: start: 2014
  44. HYDROCODONE/ACETAMINOPHEN [Concomitant]
     Active Substance: ACETAMINOPHEN\HYDROCODONE
     Route: 065
     Dates: start: 20110928
  45. LORATADINE. [Concomitant]
     Active Substance: LORATADINE
     Route: 065
     Dates: start: 20130513
  46. PROMETHAZINE [Concomitant]
     Active Substance: PROMETHAZINE HYDROCHLORIDE
     Route: 065
     Dates: start: 20141125
  47. TERBINAFINE. [Concomitant]
     Active Substance: TERBINAFINE
     Route: 065
  48. BENICAR [Concomitant]
     Active Substance: OLMESARTAN MEDOXOMIL
     Route: 065
     Dates: start: 20090120
  49. PRILOSEC [Suspect]
     Active Substance: OMEPRAZOLE MAGNESIUM
     Indication: GASTROOESOPHAGEAL REFLUX DISEASE
     Dosage: GENERIC 20 MG TO 40 MG DAILY
     Route: 065
     Dates: start: 2011, end: 2017
  50. CEPHALEXIN. [Concomitant]
     Active Substance: CEPHALEXIN
     Indication: ANTIBIOTIC THERAPY
     Route: 065
     Dates: start: 2008
  51. FUROSEMIDE. [Concomitant]
     Active Substance: FUROSEMIDE
     Indication: BLOOD PRESSURE ABNORMAL
     Route: 065
     Dates: start: 2017
  52. AZITHROMYCIN ANHYDROUS. [Concomitant]
     Active Substance: AZITHROMYCIN ANHYDROUS
     Indication: ANTIBIOTIC THERAPY
     Route: 065
     Dates: start: 2014
  53. METOPROLOL TARTRATE. [Concomitant]
     Active Substance: METOPROLOL TARTRATE
     Route: 065
     Dates: start: 20110823
  54. TERAZOSIN [Concomitant]
     Active Substance: TERAZOSIN HYDROCHLORIDE
     Route: 065
     Dates: start: 20110823
  55. LACTULOSE. [Concomitant]
     Active Substance: LACTULOSE
     Route: 065
     Dates: start: 20060508
  56. PRILOSEC OTC [Suspect]
     Active Substance: OMEPRAZOLE MAGNESIUM
     Route: 048
     Dates: start: 2001, end: 2017
  57. AMOX?CLAV [Concomitant]
     Active Substance: AMOXICILLIN\CLAVULANATE POTASSIUM
     Indication: ANTIBIOTIC THERAPY
     Route: 065
     Dates: start: 2012
  58. TRICOR [Concomitant]
     Active Substance: FENOFIBRATE
     Indication: BLOOD CHOLESTEROL ABNORMAL
     Route: 065
     Dates: start: 2010
  59. LISINOPRIL HCTZ [Concomitant]
     Active Substance: HYDROCHLOROTHIAZIDE\LISINOPRIL
     Indication: BLOOD PRESSURE ABNORMAL
     Route: 065
     Dates: start: 2006
  60. FUROSEMIDE. [Concomitant]
     Active Substance: FUROSEMIDE
     Indication: BLOOD PRESSURE ABNORMAL
     Route: 065
     Dates: start: 2011
  61. CLONIDINE. [Concomitant]
     Active Substance: CLONIDINE
     Route: 065
     Dates: start: 20110823
  62. PRILOSEC [Suspect]
     Active Substance: OMEPRAZOLE MAGNESIUM
     Indication: GASTROOESOPHAGEAL REFLUX DISEASE
     Route: 048
     Dates: start: 20161212
  63. AMOXICILLIN. [Concomitant]
     Active Substance: AMOXICILLIN
     Indication: ANTIBIOTIC THERAPY
     Route: 065
     Dates: start: 2015
  64. LISINOPRIL. [Concomitant]
     Active Substance: LISINOPRIL
     Indication: BLOOD PRESSURE ABNORMAL
     Route: 065
     Dates: start: 2012
  65. HYDRALAZINE [Concomitant]
     Active Substance: HYDRALAZINE HYDROCHLORIDE
     Indication: BLOOD PRESSURE ABNORMAL
     Route: 065
     Dates: start: 2008
  66. HYDRALAZINE [Concomitant]
     Active Substance: HYDRALAZINE HYDROCHLORIDE
     Indication: BLOOD PRESSURE ABNORMAL
     Route: 065
     Dates: start: 2014
  67. LISINOPRIL HCTZ [Concomitant]
     Active Substance: HYDROCHLOROTHIAZIDE\LISINOPRIL
     Indication: BLOOD PRESSURE ABNORMAL
     Route: 065
     Dates: start: 2008
  68. TORSEMIDE. [Concomitant]
     Active Substance: TORSEMIDE
     Indication: BLOOD PRESSURE ABNORMAL
     Route: 065
     Dates: start: 2008
  69. TORSEMIDE. [Concomitant]
     Active Substance: TORSEMIDE
     Indication: BLOOD PRESSURE ABNORMAL
     Route: 065
     Dates: start: 2012
  70. TORSEMIDE. [Concomitant]
     Active Substance: TORSEMIDE
     Indication: BLOOD PRESSURE ABNORMAL
     Route: 065
     Dates: start: 2014
  71. DICLOFENAC [Concomitant]
     Active Substance: DICLOFENAC
     Indication: PAIN
     Route: 065
     Dates: start: 2006
  72. FISH OIL [Concomitant]
     Active Substance: FISH OIL
     Indication: CARDIOVASCULAR DISORDER
     Route: 065
     Dates: start: 2016, end: 2019
  73. PREDNISONE. [Concomitant]
     Active Substance: PREDNISONE
     Route: 065
     Dates: start: 20130313
  74. METOLAZONE. [Concomitant]
     Active Substance: METOLAZONE
     Route: 065
     Dates: start: 20140410
  75. GUANFACINE. [Concomitant]
     Active Substance: GUANFACINE
     Route: 065
     Dates: start: 20161123
  76. MAGNESIUM OXIDE. [Concomitant]
     Active Substance: MAGNESIUM OXIDE
     Route: 065
     Dates: start: 20161007
  77. CALCIUM ACETATE. [Concomitant]
     Active Substance: CALCIUM ACETATE
     Route: 065
     Dates: start: 20100513
  78. ZETIA [Concomitant]
     Active Substance: EZETIMIBE
     Route: 065
     Dates: start: 20100707
  79. LISINOPRIL. [Concomitant]
     Active Substance: LISINOPRIL
     Indication: BLOOD PRESSURE ABNORMAL
     Route: 065
     Dates: start: 2015
  80. PRAVASTATIN. [Concomitant]
     Active Substance: PRAVASTATIN
     Indication: BLOOD CHOLESTEROL ABNORMAL
     Route: 065
     Dates: start: 2014
  81. CEFDINIR. [Concomitant]
     Active Substance: CEFDINIR
     Indication: ANTIBIOTIC THERAPY
     Route: 065
     Dates: start: 2013
  82. ASPIRIN. [Concomitant]
     Active Substance: ASPIRIN
     Route: 065
     Dates: start: 2017, end: 2019
  83. NOVOLIN NOS [Concomitant]
     Active Substance: INSULIN HUMAN
     Route: 065
     Dates: start: 20120504
  84. SODIUM BICARBONATE. [Concomitant]
     Active Substance: SODIUM BICARBONATE
     Route: 065
     Dates: start: 20140905
  85. CEPHALEXIN. [Concomitant]
     Active Substance: CEPHALEXIN
     Indication: ANTIBIOTIC THERAPY
     Route: 065
     Dates: start: 2016
  86. CIPROFLOXACIN. [Concomitant]
     Active Substance: CIPROFLOXACIN
     Indication: ANTIBIOTIC THERAPY
     Route: 065
     Dates: start: 2013
  87. ALLOPURINOL. [Concomitant]
     Active Substance: ALLOPURINOL
     Indication: BLOOD URIC ACID ABNORMAL
     Route: 065
     Dates: start: 2011
  88. FUROSEMIDE. [Concomitant]
     Active Substance: FUROSEMIDE
     Indication: BLOOD PRESSURE ABNORMAL
     Route: 065
     Dates: start: 2012

REACTIONS (6)
  - End stage renal disease [Not Recovered/Not Resolved]
  - Nephrogenic anaemia [Unknown]
  - Renal tubular necrosis [Unknown]
  - Acute kidney injury [Not Recovered/Not Resolved]
  - Chronic kidney disease [Not Recovered/Not Resolved]
  - Renal failure [Not Recovered/Not Resolved]

NARRATIVE: CASE EVENT DATE: 20161212
